FAERS Safety Report 9405885 (Version 2)
Quarter: 2013Q3

REPORT INFORMATION
  Report Type: Spontaneous
  Country: TH (occurrence: TH)
  Receive Date: 20130717
  Receipt Date: 20130807
  Transmission Date: 20140515
  Serious: Yes (Hospitalization)
  Sender: FDA-Public Use
  Company Number: TH-B.I. PHARMACEUTICALS,INC./RIDGEFIELD-2013-BI-20341RT

PATIENT
  Age: 71 Year
  Sex: Female
  Weight: 60 kg

DRUGS (3)
  1. PRADAXA [Suspect]
     Indication: CEREBROVASCULAR ACCIDENT PROPHYLAXIS
     Dosage: 220 MG
     Dates: end: 20130710
  2. PRADAXA [Suspect]
     Indication: ATRIAL FIBRILLATION
  3. VIATRIL S [Concomitant]
     Indication: PRODUCT USED FOR UNKNOWN INDICATION
     Route: 048

REACTIONS (2)
  - Haemarthrosis [Recovered/Resolved]
  - Fall [Recovered/Resolved]
